FAERS Safety Report 6707149-9 (Version None)
Quarter: 2010Q2

REPORT INFORMATION
  Report Type: 
  Country: None (occurrence: None)
  Receive Date: 20100503
  Receipt Date: 20100423
  Transmission Date: 20101027
  Serious: Yes (Other)
  Sender: FDA-Public Use
  Company Number: AU-PFIZER INC-2010053174

PATIENT
  Age: 68 Year
  Sex: Male

DRUGS (2)
  1. CADUET [Suspect]
     Indication: BLOOD PRESSURE
     Dosage: 5/40, 1X/DAY
     Route: 048
     Dates: start: 20100201, end: 20100215
  2. CADUET [Suspect]
     Indication: DYSLIPIDAEMIA

REACTIONS (2)
  - FEELING ABNORMAL [None]
  - LETHARGY [None]
